FAERS Safety Report 23758219 (Version 4)
Quarter: 2025Q3

REPORT INFORMATION
  Report Type: Spontaneous
  Country: US (occurrence: US)
  Receive Date: 20240418
  Receipt Date: 20250919
  Transmission Date: 20251021
  Serious: Yes (Hospitalization, Other)
  Sender: CATALYST PHARMA
  Company Number: US-CATALYST PHARMACEUTICALS, INC-US-CATA-24-00300

PATIENT
  Sex: Female
  Weight: 78.912 kg

DRUGS (28)
  1. FIRDAPSE [Suspect]
     Active Substance: AMIFAMPRIDINE PHOSPHATE
     Indication: Myasthenic syndrome
     Dosage: HALF A TABLET THREE TIMES DAILY FOR FOUR DAYS, THEN INCREASE BY HALF A TABLET EVERY FOUR DAYS UNTIL
     Route: 048
     Dates: start: 20230202, end: 2023
  2. FIRDAPSE [Suspect]
     Active Substance: AMIFAMPRIDINE PHOSPHATE
     Dosage: 60 MG PER DAY
     Route: 048
     Dates: start: 2023, end: 2023
  3. FIRDAPSE [Suspect]
     Active Substance: AMIFAMPRIDINE PHOSPHATE
     Dosage: 100 MG TWO 10 MG TABLETS 5 TIMES DAILY
     Route: 048
     Dates: start: 202304, end: 2023
  4. FIRDAPSE [Suspect]
     Active Substance: AMIFAMPRIDINE PHOSPHATE
     Dosage: 80 MG PER DAY
     Route: 048
     Dates: start: 20230718, end: 20240615
  5. FIRDAPSE [Suspect]
     Active Substance: AMIFAMPRIDINE PHOSPHATE
     Dosage: 100 MG (10 TABLETS DAILY IN DIVIDED DOSES AS DIRECTED BY PRESCRIBER)
     Route: 048
     Dates: start: 20240615
  6. DILAUDID [Suspect]
     Active Substance: HYDROMORPHONE HYDROCHLORIDE
     Indication: Product used for unknown indication
     Route: 065
     Dates: start: 20240404, end: 20240404
  7. ALENDRONATE [Concomitant]
     Active Substance: ALENDRONATE SODIUM
     Indication: Product used for unknown indication
     Dosage: 70 MG DAILY
     Route: 065
  8. ALLEGRA [Concomitant]
     Active Substance: FEXOFENADINE HYDROCHLORIDE
     Indication: Product used for unknown indication
     Dosage: 180 MG DAILY
     Route: 065
  9. ASPIRIN [Concomitant]
     Active Substance: ASPIRIN
     Indication: Product used for unknown indication
     Dosage: 81 MG DAILY
     Route: 065
  10. ATORVASTATIN [Concomitant]
     Active Substance: ATORVASTATIN
     Indication: Product used for unknown indication
     Dosage: 40 MG DAILY
     Route: 065
  11. DIETARY SUPPLEMENT [Concomitant]
     Active Substance: DIETARY SUPPLEMENT
     Indication: Gastrointestinal disorder
     Dosage: DAILY
     Route: 065
  12. IPRATROPIUM [Concomitant]
     Active Substance: IPRATROPIUM
     Indication: Product used for unknown indication
     Dosage: 3X A DAY
     Route: 045
  13. LEVOTHYROXINE [Concomitant]
     Active Substance: LEVOTHYROXINE
     Indication: Product used for unknown indication
     Dosage: 75 MCG DAILY
     Route: 065
  14. MELOXICAM [Concomitant]
     Active Substance: MELOXICAM
     Indication: Product used for unknown indication
     Dosage: 15 MG DAILY
     Route: 065
  15. MOTEGRITY [Concomitant]
     Active Substance: PRUCALOPRIDE SUCCINATE
     Indication: Product used for unknown indication
     Dosage: 2 MG DAILY
     Route: 065
  16. QNASL [Concomitant]
     Active Substance: BECLOMETHASONE DIPROPIONATE
     Indication: Product used for unknown indication
     Dosage: DAILY
     Route: 045
  17. TRULANCE [Concomitant]
     Active Substance: PLECANATIDE
     Indication: Product used for unknown indication
     Dosage: 3 MG WEEKLY
     Route: 065
  18. VENTOLIN [Concomitant]
     Active Substance: ALBUTEROL SULFATE
     Indication: Product used for unknown indication
     Route: 055
  19. VERAPAMIL [Concomitant]
     Active Substance: VERAPAMIL HYDROCHLORIDE
     Indication: Product used for unknown indication
     Dosage: 120 MG DAILY
     Route: 065
  20. VITAMIN D3 [Concomitant]
     Active Substance: CHOLECALCIFEROL
     Indication: Product used for unknown indication
     Dosage: DAILY
     Route: 065
  21. XANAX [Concomitant]
     Active Substance: ALPRAZOLAM
     Indication: Product used for unknown indication
     Route: 065
  22. PROBIOTICS NOS [Concomitant]
     Active Substance: PROBIOTICS NOS
     Indication: Product used for unknown indication
     Dosage: DAILY
     Route: 065
  23. CALCIPOTRIENE [Concomitant]
     Active Substance: CALCIPOTRIENE
     Indication: Product used for unknown indication
     Dosage: TWICE DAILY
     Route: 065
  24. CEFUROXIME [Concomitant]
     Active Substance: CEFUROXIME
     Indication: Product used for unknown indication
     Dosage: 250 MG DAILY
     Route: 065
  25. GABAPENTIN/BENZOCAINE/PEROXIDE [Concomitant]
     Indication: Product used for unknown indication
     Dosage: THREE TIMES DAILY
     Route: 065
  26. MUPIROCIN [Concomitant]
     Active Substance: MUPIROCIN
     Indication: Product used for unknown indication
     Dosage: DAILY
     Route: 065
  27. SPECTRUM DIGESTIVE ENZYMES [Concomitant]
     Indication: Product used for unknown indication
     Dosage: DAILY
     Route: 065
  28. MESTINON [Concomitant]
     Active Substance: PYRIDOSTIGMINE BROMIDE
     Indication: Product used for unknown indication
     Dosage: 30 MG THREE TIMES A DAY
     Route: 065

REACTIONS (13)
  - Anaemia [Unknown]
  - Post procedural complication [Recovered/Resolved]
  - Anaesthesia procedure [Recovered/Resolved]
  - Acute respiratory failure [Recovered/Resolved]
  - Hypothermia [Recovered/Resolved]
  - Accidental overdose [Recovered/Resolved]
  - Sensory loss [Unknown]
  - Anal incontinence [Unknown]
  - Urinary incontinence [Unknown]
  - Peroneal nerve palsy [Unknown]
  - Hypoglycaemia [Recovered/Resolved]
  - Back pain [Unknown]
  - Product dose omission issue [Unknown]

NARRATIVE: CASE EVENT DATE: 20240101
